FAERS Safety Report 6728994-X (Version None)
Quarter: 2010Q2

REPORT INFORMATION
  Report Type: 
  Country: None (occurrence: None)
  Receive Date: 20100517
  Receipt Date: 20100323
  Transmission Date: 20101027
  Serious: No
  Sender: FDA-Public Use
  Company Number: US-ABBOTT-10P-163-0634012-00

PATIENT
  Sex: Male
  Weight: 83.99 kg

DRUGS (1)
  1. SIMCOR [Suspect]
     Indication: DYSLIPIDAEMIA
     Dosage: 500/20 MG DAILY AT BEDTIME
     Route: 048
     Dates: start: 20100313

REACTIONS (1)
  - DIARRHOEA [None]
